FAERS Safety Report 21836054 (Version 1)
Quarter: 2023Q1

REPORT INFORMATION
  Report Type: Report from Study
  Country: US (occurrence: US)
  Receive Date: 20230109
  Receipt Date: 20230109
  Transmission Date: 20230417
  Serious: No
  Sender: FDA-Public Use
  Company Number: US-ABBVIE-4233753

PATIENT
  Age: 66 Year
  Sex: Female

DRUGS (3)
  1. HUMIRA [Suspect]
     Active Substance: ADALIMUMAB
     Indication: Hidradenitis
     Dosage: DAY 29
     Route: 058
     Dates: start: 20221118
  2. HUMIRA [Suspect]
     Active Substance: ADALIMUMAB
     Dosage: 80MG ON DAY 15
     Route: 058
     Dates: start: 20211230, end: 20211230
  3. HUMIRA [Suspect]
     Active Substance: ADALIMUMAB
     Dosage: 160MG ON DAY 1
     Route: 058
     Dates: start: 20211216, end: 20211216

REACTIONS (3)
  - Fatigue [Recovered/Resolved]
  - Hidradenitis [Recovered/Resolved]
  - Gastroenteritis viral [Recovered/Resolved]

NARRATIVE: CASE EVENT DATE: 20221101
